FAERS Safety Report 6110958-0 (Version None)
Quarter: 2009Q1

REPORT INFORMATION
  Report Type: 
  Country: None (occurrence: None)
  Receive Date: 20090311
  Receipt Date: 20090309
  Transmission Date: 20090719
  Serious: Yes (Life-Threatening, Hospitalization)
  Sender: FDA-Public Use
  Company Number: DE-BRISTOL-MYERS SQUIBB COMPANY-14535439

PATIENT
  Age: 69 Year
  Sex: Male
  Weight: 66 kg

DRUGS (5)
  1. PACLITAXEL [Suspect]
     Indication: OROPHARYNGEAL CANCER STAGE UNSPECIFIED
     Route: 042
     Dates: start: 20080917
  2. AMLODIPINE [Concomitant]
     Indication: HYPERTENSION
     Route: 048
  3. AMOXICILLIN AND CLAVULANATE POTASSIUM [Concomitant]
     Indication: BACTERIAL INFECTION
     Dosage: 1DF=875/125MG
     Route: 048
  4. PANTOPRAZOLE [Concomitant]
     Route: 048
  5. TORSEMIDE [Concomitant]
     Indication: CARDIAC FAILURE
     Route: 048

REACTIONS (2)
  - CARDIAC ARREST [None]
  - SHOCK [None]
